FAERS Safety Report 8466499 (Version 2)
Quarter: 2012Q4

REPORT INFORMATION
  Report Type: 
  Country: ES (occurrence: ES)
  Receive Date: 20120319
  Receipt Date: 20120927
  Transmission Date: 20130627
  Serious: Yes (Hospitalization)
  Sender: FDA-Public Use
  Company Number: ES-ELI_LILLY_AND_COMPANY-ES201203002506

PATIENT
  Sex: Female
  Weight: 72 kg

DRUGS (9)
  1. FORSTEO [Suspect]
     Indication: OSTEOPOROSIS
     Dosage: 20 ug, qd
     Route: 058
     Dates: start: 20110508
  2. ATROVENT [Concomitant]
     Indication: RESPIRATORY FAILURE
     Dosage: 1 DF, qd
     Route: 055
  3. THEODUR [Concomitant]
     Dosage: 200 mg, qd
     Route: 048
  4. UROLOSIN [Concomitant]
     Dosage: 0.4 mg, qd
     Route: 048
  5. ACFOL [Concomitant]
     Dosage: 5 mg, qd
     Route: 048
  6. DOLOSTOP                           /00020001/ [Concomitant]
     Dosage: 650 mg, qd
     Route: 048
  7. SEGURIL [Concomitant]
     Dosage: 0.5 DF, qd
     Route: 048
  8. OMEPRAZOL [Concomitant]
     Dosage: 1 DF, qd
     Route: 048
  9. OXYGEN [Concomitant]
     Dosage: UNK, qd
     Route: 055

REACTIONS (1)
  - Respiratory failure [Recovering/Resolving]
